FAERS Safety Report 10018260 (Version 1)
Quarter: 2014Q1

REPORT INFORMATION
  Report Type: Spontaneous
  Country: US (occurrence: None)
  Receive Date: 20140313
  Receipt Date: 20140313
  Transmission Date: 20141002
  Serious: Yes (Hospitalization, Other)
  Sender: FDA-Public Use
  Company Number: None

PATIENT
  Age: 50 Year
  Sex: Male
  Weight: 81.19 kg

DRUGS (8)
  1. PENICILLIN V POTASSIUM [Suspect]
     Indication: INFECTION
     Route: 048
     Dates: start: 20140203, end: 20140206
  2. PENICILLIN V POTASSIUM [Suspect]
     Indication: NASOPHARYNGITIS
     Route: 048
     Dates: start: 20140203, end: 20140206
  3. PENICILLIN V POTASSIUM [Suspect]
     Indication: RESPIRATORY TRACT INFECTION
     Route: 048
     Dates: start: 20140203, end: 20140206
  4. PENICILLIN V POTASSIUM [Suspect]
     Route: 048
     Dates: start: 20140203, end: 20140206
  5. MECLIZINE (ANTIVERT) [Concomitant]
  6. HYDROCODONE- ACETAMINOPHEN [Concomitant]
  7. LORTAB [Concomitant]
  8. TRAMADO (ULTRAM) ? [Concomitant]

REACTIONS (1)
  - Diarrhoea [None]
